FAERS Safety Report 4441602-6 (Version None)
Quarter: 2004Q3

REPORT INFORMATION
  Report Type: 
  Country: None (occurrence: None)
  Receive Date: 20040907
  Receipt Date: 20040831
  Transmission Date: 20050211
  Serious: Yes (Life-Threatening, Other)
  Sender: FDA-Public Use
  Company Number: 200412645EU

PATIENT
  Sex: Female

DRUGS (1)
  1. ARAVA [Suspect]
     Indication: DRUG USE FOR UNKNOWN INDICATION
     Route: 048

REACTIONS (6)
  - ALOPECIA [None]
  - ANAL HAEMORRHAGE [None]
  - EAR HAEMORRHAGE [None]
  - EPISTAXIS [None]
  - MOUTH HAEMORRHAGE [None]
  - STOMATITIS [None]
